FAERS Safety Report 6975585-1 (Version None)
Quarter: 2010Q3

REPORT INFORMATION
  Report Type: 
  Country: None (occurrence: None)
  Receive Date: 20100910
  Receipt Date: 20090323
  Transmission Date: 20110219
  Serious: No
  Sender: FDA-Public Use
  Company Number: US-WYE-H08687609

PATIENT
  Age: 61 Year
  Sex: Female
  Weight: 56.75 kg

DRUGS (1)
  1. PRISTIQ [Suspect]
     Indication: DEPRESSION
     Route: 048
     Dates: start: 20080701

REACTIONS (3)
  - AMBLYOPIA [None]
  - VISUAL IMPAIRMENT [None]
  - WEIGHT DECREASED [None]
